FAERS Safety Report 10477878 (Version 2)
Quarter: 2015Q3

REPORT INFORMATION
  Report Type: Spontaneous
  Country: FR (occurrence: FR)
  Receive Date: 20140926
  Receipt Date: 20150818
  Transmission Date: 20151125
  Serious: Yes (Hospitalization)
  Sender: FDA-Public Use
  Company Number: FR-SA-2014SA131055

PATIENT
  Age: 62 Year
  Sex: Female

DRUGS (7)
  1. LERCAPRESS [Concomitant]
     Active Substance: ENALAPRIL MALEATE\LERCANIDIPINE HYDROCHLORIDE
  2. ARAVA [Suspect]
     Active Substance: LEFLUNOMIDE
     Route: 048
  3. OMEPRAZOLE. [Concomitant]
     Active Substance: OMEPRAZOLE
  4. CRESTOR [Concomitant]
     Active Substance: ROSUVASTATIN CALCIUM
     Dosage: STRENGTH: 10 MG
  5. XYZALL [Concomitant]
     Active Substance: LEVOCETIRIZINE DIHYDROCHLORIDE
  6. ROACTEMRA [Suspect]
     Active Substance: TOCILIZUMAB
     Indication: RHEUMATOID ARTHRITIS
     Route: 042
     Dates: start: 20100510, end: 20140610
  7. DEROXAT [Concomitant]
     Active Substance: PAROXETINE HYDROCHLORIDE

REACTIONS (1)
  - Osteitis [Recovered/Resolved]

NARRATIVE: CASE EVENT DATE: 201405
